FAERS Safety Report 10718548 (Version 1)
Quarter: 2015Q1

REPORT INFORMATION
  Report Type: Spontaneous
  Country: CN (occurrence: CN)
  Receive Date: 20150119
  Receipt Date: 20150119
  Transmission Date: 20150721
  Serious: Yes (Other)
  Sender: FDA-Public Use
  Company Number: CN-CIPLA LTD.-2015CN00272

PATIENT

DRUGS (4)
  1. TOPOTECAN [Suspect]
     Active Substance: TOPOTECAN\TOPOTECAN HYDROCHLORIDE
     Indication: T-CELL LYMPHOMA
     Dosage: 1.5 MG/M2, FROM DAY 1-DAY 3
     Route: 042
  2. IFOSFAMIDE. [Suspect]
     Active Substance: IFOSFAMIDE
     Indication: T-CELL LYMPHOMA
     Dosage: 1300 MG/M2 (1.3 G/M2), FROM DAY 1-DAY 3
     Route: 042
  3. MESNA. [Suspect]
     Active Substance: MESNA
     Indication: T-CELL LYMPHOMA
     Dosage: UNK UNK, TID
  4. ETOPOSIDE INJECTION 20 MG/ ML [Suspect]
     Active Substance: ETOPOSIDE
     Dosage: 65 MG/M2, FROM DAY 4-DAY 6
     Route: 042

REACTIONS (3)
  - Malignant neoplasm progression [None]
  - Disease progression [Unknown]
  - T-cell lymphoma [None]
